FAERS Safety Report 4586913-9 (Version None)
Quarter: 2005Q1

REPORT INFORMATION
  Report Type: 
  Country: None (occurrence: None)
  Receive Date: 20050216
  Receipt Date: 20050216
  Transmission Date: 20050727
  Serious: No
  Sender: FDA-Public Use
  Company Number: None

PATIENT
  Age: 60 Year
  Sex: Female
  Weight: 63.9572 kg

DRUGS (3)
  1. ZETIA [Suspect]
     Indication: HYPERCHOLESTEROLAEMIA
     Dosage: 10 MG PO QD
     Route: 048
     Dates: start: 20031201, end: 20040901
  2. CALCHICINE [Concomitant]
  3. BENAZEPRIL HCL [Concomitant]

REACTIONS (1)
  - HYPOAESTHESIA [None]
